FAERS Safety Report 20933360 (Version 1)
Quarter: 2022Q2

REPORT INFORMATION
  Report Type: Spontaneous
  Country: US (occurrence: None)
  Receive Date: 20220607
  Receipt Date: 20220607
  Transmission Date: 20220721
  Serious: No
  Sender: FDA-Public Use
  Company Number: None

PATIENT
  Age: 73 Year
  Sex: Female
  Weight: 72.57 kg

DRUGS (2)
  1. ALENDRONATE SODIUM [Suspect]
     Active Substance: ALENDRONATE SODIUM
     Indication: Osteopenia
     Dosage: FREQUENCY : WEEKLY;?
     Route: 048
     Dates: start: 20210801, end: 20210802
  2. ALENDRONATE SODIUM [Suspect]
     Active Substance: ALENDRONATE SODIUM
     Indication: Osteoporosis

REACTIONS (6)
  - Chest pain [None]
  - Rash [None]
  - Urticaria [None]
  - Swelling face [None]
  - Lip swelling [None]
  - Paraesthesia [None]

NARRATIVE: CASE EVENT DATE: 20210801
